FAERS Safety Report 9303981 (Version 4)
Quarter: 2013Q2

REPORT INFORMATION
  Report Type: Spontaneous
  Country: BR (occurrence: BR)
  Receive Date: 20130522
  Receipt Date: 20130614
  Transmission Date: 20140414
  Serious: Yes (Hospitalization, Other)
  Sender: FDA-Public Use
  Company Number: PHHY2013BR049362

PATIENT
  Age: 88 Year
  Sex: Female

DRUGS (7)
  1. APRESOLIN [Suspect]
     Indication: HYPERTENSION
     Dosage: 50 MG, BID
     Route: 048
     Dates: start: 2010, end: 201301
  2. APRESOLIN [Suspect]
     Dosage: 25 MG, TID
     Route: 048
     Dates: start: 201302
  3. ATORVASTATIN [Suspect]
     Dosage: 10 MG, QD
  4. CILOSTAZOL [Suspect]
     Dosage: 50 MG, TID
  5. NATRILIX SR [Suspect]
     Dosage: 1.5 G, QD
  6. SOMALGIN [Suspect]
     Dosage: 100 MG, QD
  7. ALOIS [Suspect]

REACTIONS (1)
  - Cerebrovascular accident [Recovered/Resolved]
